FAERS Safety Report 4749229-3 (Version None)
Quarter: 2005Q3

REPORT INFORMATION
  Report Type: 
  Country: None (occurrence: None)
  Receive Date: 20050817
  Receipt Date: 20050804
  Transmission Date: 20060218
  Serious: Yes (Hospitalization, Other)
  Sender: FDA-Public Use
  Company Number: HQWYE697304AUG05

PATIENT
  Age: 52 Year
  Sex: Male

DRUGS (6)
  1. INIPOMP (PANTOPRAZOLE, TABLET, DELAYED RELEASE) [Suspect]
     Indication: PROPHYLAXIS
     Dosage: 20 MG 1X PER 1 DAY ORAL
     Route: 048
     Dates: start: 20050613, end: 20050620
  2. CODOLIPRANE (CODEINE PHOSPHATE/PARACETAMOL,) [Suspect]
     Indication: PAIN
     Dosage: 1 DOSAGE FORM 6X PER 1 DAY ORAL
     Route: 048
     Dates: start: 20050607, end: 20050620
  3. LOVENOX [Suspect]
     Indication: PROPHYLAXIS
     Dosage: 40 MG 1X PER 1 DAY SC
     Route: 058
     Dates: start: 20050613, end: 20050620
  4. KETOPROFEN [Suspect]
     Indication: PAIN
     Dosage: 200 MG 1X PER 1 DAY ORAL
     Route: 048
     Dates: start: 20050607, end: 20050620
  5. OMEPRAZOLE [Concomitant]
  6. FRAGMIN [Concomitant]

REACTIONS (4)
  - C-REACTIVE PROTEIN INCREASED [None]
  - PRURIGO [None]
  - PYREXIA [None]
  - RED BLOOD CELL SEDIMENTATION RATE INCREASED [None]
